FAERS Safety Report 9478086 (Version 1)
Quarter: 2013Q3

REPORT INFORMATION
  Report Type: Spontaneous
  Country: US (occurrence: US)
  Receive Date: 20130827
  Receipt Date: 20130827
  Transmission Date: 20140515
  Serious: Yes (Other)
  Sender: FDA-Public Use
  Company Number: US-SANOFI-AVENTIS-2013SA084498

PATIENT
  Sex: Female

DRUGS (3)
  1. LANTUS [Suspect]
     Route: 058
  2. LANTUS SOLOSTAR [Concomitant]
  3. HUMALOG [Concomitant]

REACTIONS (1)
  - Blindness [Unknown]
